FAERS Safety Report 20985304 (Version 1)
Quarter: 2022Q2

REPORT INFORMATION
  Report Type: Spontaneous
  Country: FR (occurrence: FR)
  Receive Date: 20220621
  Receipt Date: 20220621
  Transmission Date: 20220721
  Serious: Yes (Other)
  Sender: FDA-Public Use
  Company Number: FR-ADIENNEP-2022AD000130

PATIENT
  Age: 37 Year
  Sex: Male

DRUGS (6)
  1. FLUDARABINE PHOSPHATE [Suspect]
     Active Substance: FLUDARABINE PHOSPHATE
     Indication: Cord blood transplant therapy
     Dosage: 40 MG/M2
     Route: 042
  2. THYMOGLOBULIN [Suspect]
     Active Substance: LAPINE T-LYMPHOCYTE IMMUNE GLOBULIN
     Indication: Cord blood transplant therapy
     Dosage: 5 MG/KG
     Route: 042
  3. CYCLOSPORINE [Suspect]
     Active Substance: CYCLOSPORINE
     Indication: Prophylaxis against graft versus host disease
     Dosage: 3 MG/KG
     Route: 042
  4. MYCOPHENOLATE MOFETIL [Suspect]
     Active Substance: MYCOPHENOLATE MOFETIL
     Indication: Prophylaxis against graft versus host disease
     Dosage: 3 MG/KG(3 MG/KG 3 DAYS BEFORE DUCBT AND 1 MONTH AFTER)
  5. BUSULFAN [Suspect]
     Active Substance: BUSULFAN
     Indication: Cord blood transplant therapy
     Dosage: 3.2 MG/KG
     Route: 042
  6. THIOTEPA [Suspect]
     Active Substance: THIOTEPA
     Indication: Cord blood transplant therapy
     Dosage: 5 MG/KG
     Route: 042

REACTIONS (5)
  - Retinopathy haemorrhagic [Recovered/Resolved]
  - Neck pain [Unknown]
  - Hyperfibrinogenaemia [Unknown]
  - Thrombocytopenia [Recovered/Resolved]
  - Headache [Unknown]
